FAERS Safety Report 21886109 (Version 1)
Quarter: 2023Q1

REPORT INFORMATION
  Report Type: Spontaneous
  Country: US (occurrence: US)
  Receive Date: 20230119
  Receipt Date: 20230119
  Transmission Date: 20230418
  Serious: Yes (Other)
  Sender: FDA-Public Use
  Company Number: US-PFIZER INC-202300018328

PATIENT
  Age: 66 Year
  Sex: Female

DRUGS (3)
  1. PAXLOVID [Interacting]
     Active Substance: NIRMATRELVIR\RITONAVIR
     Indication: COVID-19 treatment
     Dosage: 3 DF, 2X/DAY [PF-07321332 300 MG]/[RITONAVIR 100 MG]; IN THE MORNING AND EVENING
     Route: 048
     Dates: start: 20230106, end: 202301
  2. DILTIAZEM [Interacting]
     Active Substance: DILTIAZEM
     Indication: Hypertension
     Dosage: 300 MG, 1X/DAY
  3. CVS DAYTIME NIGHTTIME COLD AND FLU RELIEF [Concomitant]
     Indication: Nasopharyngitis
     Dosage: 2 TABLETS EVERY 4-6 HOURS (ONLY TOOK 3 DOSES)
     Dates: start: 20230103, end: 20230105

REACTIONS (10)
  - Labelled drug-drug interaction medication error [Unknown]
  - Blood pressure decreased [Unknown]
  - Blood pressure fluctuation [Unknown]
  - Presyncope [Unknown]
  - Stupor [Unknown]
  - Dysgeusia [Unknown]
  - Sciatica [Unknown]
  - Fatigue [Unknown]
  - Feeling cold [Unknown]
  - Myalgia [Unknown]

NARRATIVE: CASE EVENT DATE: 20230106
